FAERS Safety Report 5850932-2 (Version None)
Quarter: 2008Q3

REPORT INFORMATION
  Report Type: 
  Country: None (occurrence: None)
  Receive Date: 20080820
  Receipt Date: 20080815
  Transmission Date: 20090109
  Serious: Yes (Death, Other)
  Sender: FDA-Public Use
  Company Number: PHHY2008HN17535

PATIENT
  Sex: Female
  Weight: 60 kg

DRUGS (6)
  1. GLEEVEC [Suspect]
     Indication: CHRONIC MYELOID LEUKAEMIA
     Dosage: 400 MG/DAY
     Route: 048
     Dates: start: 20080313, end: 20080805
  2. GLEEVEC [Suspect]
     Dosage: 400 MG
     Dates: start: 20080810
  3. CEFTRIAXONE [Concomitant]
     Dosage: UNK
     Dates: start: 20080805, end: 20080808
  4. AMIKIN [Concomitant]
     Dosage: UNK
     Dates: start: 20080805, end: 20080808
  5. FLUCONAZOLE [Concomitant]
     Dosage: UNK
     Dates: start: 20080805, end: 20080808
  6. FLUID/ELECTROLYTE REPLACEMENT THERAPY [Concomitant]
     Indication: PYREXIA
     Dosage: UNK
     Dates: start: 20080805, end: 20080808

REACTIONS (9)
  - BLAST CRISIS IN MYELOGENOUS LEUKAEMIA [None]
  - DRUG RESISTANCE [None]
  - HAEMOGLOBIN DECREASED [None]
  - HAEMORRHAGE [None]
  - LUNG INFILTRATION [None]
  - PYREXIA [None]
  - RESPIRATORY FAILURE [None]
  - SEPSIS [None]
  - SPLENOMEGALY [None]
